FAERS Safety Report 7368728-1 (Version None)
Quarter: 2011Q1

REPORT INFORMATION
  Report Type: 
  Country: None (occurrence: None)
  Receive Date: 20110304
  Receipt Date: 20110228
  Transmission Date: 20110831
  Serious: Yes (Other)
  Sender: FDA-Public Use
  Company Number: 2011SP009343

PATIENT
  Sex: Male

DRUGS (2)
  1. ZYPREXA [Concomitant]
  2. SAPHRIS [Suspect]
     Indication: SCHIZOPHRENIA
     Dosage: 20 MG

REACTIONS (4)
  - DRUG INEFFECTIVE [None]
  - INTENTIONAL SELF-INJURY [None]
  - STAB WOUND [None]
  - SCHIZOPHRENIA [None]
